FAERS Safety Report 6847585-3 (Version None)
Quarter: 2010Q3

REPORT INFORMATION
  Report Type: 
  Country: None (occurrence: None)
  Receive Date: 20100716
  Receipt Date: 20100705
  Transmission Date: 20110219
  Serious: Yes (Other)
  Sender: FDA-Public Use
  Company Number: CA-JNJFOC-20100701797

PATIENT
  Sex: Male
  Weight: 81.8 kg

DRUGS (3)
  1. REMICADE [Suspect]
     Indication: COLITIS ULCERATIVE
     Route: 042
  2. MULTI-VITAMINS [Concomitant]
  3. OMEGA VITAMIN [Concomitant]

REACTIONS (6)
  - BASAL CELL CARCINOMA [None]
  - CHAPPED LIPS [None]
  - DRY MOUTH [None]
  - SINUS CONGESTION [None]
  - SINUS OPERATION [None]
  - SKIN CHAPPED [None]
